FAERS Safety Report 25077400 (Version 2)
Quarter: 2025Q3

REPORT INFORMATION
  Report Type: Spontaneous
  Country: US (occurrence: US)
  Receive Date: 20250314
  Receipt Date: 20250703
  Transmission Date: 20251020
  Serious: Yes (Death, Hospitalization, Other)
  Sender: SYNDAX
  Company Number: US-SYNDAX PHARMACEUTICALS, INC.-2025US000237

PATIENT
  Sex: Female
  Weight: 56.236 kg

DRUGS (2)
  1. REVUFORJ [Suspect]
     Active Substance: REVUMENIB CITRATE
     Indication: Acute myeloid leukaemia
     Dosage: 110 MILLIGRAM (TOTAL DOSE: 270 MG), BID
     Route: 048
     Dates: start: 20241205
  2. REVUFORJ [Suspect]
     Active Substance: REVUMENIB CITRATE
     Dosage: 160 MILLIGRAM (TOTAL DOSE: 270 MG), BID
     Route: 048
     Dates: start: 20241205

REACTIONS (2)
  - Death [Fatal]
  - Infection [Unknown]
